FAERS Safety Report 12969200 (Version 2)
Quarter: 2016Q4

REPORT INFORMATION
  Report Type: Spontaneous
  Country: JP (occurrence: JP)
  Receive Date: 20161123
  Receipt Date: 20161223
  Transmission Date: 20170207
  Serious: Yes (Hospitalization, Other)
  Sender: FDA-Public Use
  Company Number: JP-VALIDUS PHARMACEUTICALS LLC-JP-2016VAL003029

PATIENT
  Age: 63 Year
  Sex: Male

DRUGS (6)
  1. TORISEL [Suspect]
     Active Substance: TEMSIROLIMUS
     Indication: METASTATIC RENAL CELL CARCINOMA
     Dosage: 15 MG, WEEKLY
     Route: 041
     Dates: start: 20160425, end: 20160425
  2. TORISEL [Suspect]
     Active Substance: TEMSIROLIMUS
     Dosage: 20 MILLIGRAM(S); EVERY OTHER WEEK
     Route: 041
     Dates: start: 201606, end: 201606
  3. LASIX [Suspect]
     Active Substance: FUROSEMIDE
     Indication: OEDEMA
     Dosage: UNK
     Route: 065
  4. TORISEL [Suspect]
     Active Substance: TEMSIROLIMUS
     Dosage: 15 MG, WEEKLY
     Route: 041
     Dates: start: 20160509, end: 20160509
  5. TORISEL [Suspect]
     Active Substance: TEMSIROLIMUS
     Dosage: 20 MG, EVERY OTHER WEEK
     Route: 041
     Dates: start: 20160523, end: 20160523
  6. TORISEL [Suspect]
     Active Substance: TEMSIROLIMUS
     Dosage: 20 MILLIGRAM(S); WEEKLY
     Route: 041
     Dates: start: 201606, end: 201606

REACTIONS (10)
  - Pharyngeal oedema [Not Recovered/Not Resolved]
  - Pulmonary oedema [Unknown]
  - Scrotal oedema [Unknown]
  - Stomatitis [Not Recovered/Not Resolved]
  - Neutrophil count decreased [Recovered/Resolved]
  - Generalised oedema [Not Recovered/Not Resolved]
  - Pleural effusion [Not Recovered/Not Resolved]
  - Neoplasm progression [Unknown]
  - Electrolyte imbalance [Unknown]
  - Glycosylated haemoglobin increased [Not Recovered/Not Resolved]

NARRATIVE: CASE EVENT DATE: 20160425
